FAERS Safety Report 10339804 (Version 1)
Quarter: 2014Q3

REPORT INFORMATION
  Report Type: Spontaneous
  Country: US (occurrence: None)
  Receive Date: 20140723
  Receipt Date: 20140723
  Transmission Date: 20150326
  Serious: Yes (Disabling)
  Sender: FDA-Public Use
  Company Number: None

PATIENT
  Age: 54 Year
  Sex: Male
  Weight: 70.31 kg

DRUGS (1)
  1. LEVOFLOXACIN [Suspect]
     Active Substance: LEVOFLOXACIN
     Indication: LOWER RESPIRATORY TRACT INFECTION
     Dosage: 2 PILLS FIRST DOSE   1 PILL EVERY 48 HO  TAKEN BY MOUTH
     Route: 048
     Dates: start: 20140619, end: 20140626

REACTIONS (4)
  - Peripheral swelling [None]
  - Gait disturbance [None]
  - Tendon disorder [None]
  - Pain in extremity [None]

NARRATIVE: CASE EVENT DATE: 20140619
